FAERS Safety Report 7786503-0 (Version None)
Quarter: 2011Q3

REPORT INFORMATION
  Report Type: 
  Country: None (occurrence: None)
  Receive Date: 20110929
  Receipt Date: 20110923
  Transmission Date: 20111222
  Serious: Yes (Hospitalization)
  Sender: FDA-Public Use
  Company Number: US-GLAXOSMITHKLINE-A0844823A

PATIENT
  Age: 56 Year
  Sex: Male
  Weight: 138.2 kg

DRUGS (1)
  1. AVANDIA [Suspect]
     Indication: TYPE 2 DIABETES MELLITUS
     Dosage: 4MG PER DAY
     Route: 048
     Dates: start: 20020101, end: 20050101

REACTIONS (5)
  - BACK PAIN [None]
  - CARDIAC FAILURE CONGESTIVE [None]
  - ANAEMIA [None]
  - DEPRESSION [None]
  - INFECTION [None]
